FAERS Safety Report 8623297-0 (Version None)
Quarter: 2012Q3

REPORT INFORMATION
  Report Type: 
  Country: None (occurrence: None)
  Receive Date: 20120827
  Receipt Date: 20120816
  Transmission Date: 20120928
  Serious: Yes (Death)
  Sender: FDA-Public Use
  Company Number: DE-ELI_LILLY_AND_COMPANY-DE201208005225

PATIENT

DRUGS (1)
  1. STRATTERA [Suspect]

REACTIONS (1)
  - DEATH [None]
